FAERS Safety Report 13251441 (Version 1)
Quarter: 2017Q1

REPORT INFORMATION
  Report Type: Other
  Country: GB (occurrence: JP)
  Receive Date: 20170220
  Receipt Date: 20170220
  Transmission Date: 20170428
  Serious: Yes (Hospitalization, Other)
  Sender: FDA-Public Use
  Company Number: JP-CLARIS PHARMASERVICES-1063321

PATIENT
  Age: 31 Year
  Sex: Female

DRUGS (1)
  1. FUROSEMIDE. [Suspect]
     Active Substance: FUROSEMIDE
     Indication: URINE OUTPUT DECREASED

REACTIONS (5)
  - Nephrocalcinosis [Unknown]
  - Hypokalaemia [Recovering/Resolving]
  - Abdominal pain [Recovering/Resolving]
  - Ileus paralytic [Recovering/Resolving]
  - Drug abuse [Recovering/Resolving]
